FAERS Safety Report 21443674 (Version 2)
Quarter: 2022Q4

REPORT INFORMATION
  Report Type: Spontaneous
  Country: CN (occurrence: CN)
  Receive Date: 20221012
  Receipt Date: 20221020
  Transmission Date: 20230113
  Serious: Yes (Hospitalization, Other)
  Sender: FDA-Public Use
  Company Number: CN-SUN PHARMACEUTICAL INDUSTRIES LTD-2022R1-346753

PATIENT
  Age: 29 Year
  Sex: Male

DRUGS (1)
  1. METHIMAZOLE [Suspect]
     Active Substance: METHIMAZOLE
     Indication: Hyperthyroidism
     Dosage: 20 MILLIGRAM, DAILY
     Route: 065

REACTIONS (4)
  - Myocarditis [Recovered/Resolved]
  - Basedow^s disease [Recovered/Resolved]
  - Hyperthyroidism [Recovered/Resolved]
  - Systemic lupus erythematosus [Recovered/Resolved]
